FAERS Safety Report 6543735-7 (Version None)
Quarter: 2010Q1

REPORT INFORMATION
  Report Type: 
  Country: None (occurrence: None)
  Receive Date: 20100120
  Receipt Date: 20100112
  Transmission Date: 20100710
  Serious: Yes (Hospitalization)
  Sender: FDA-Public Use
  Company Number: JP-ASTRAZENECA-2009SE32278

PATIENT
  Age: 27163 Day
  Sex: Male
  Weight: 70 kg

DRUGS (3)
  1. CRESTOR [Suspect]
     Indication: DYSLIPIDAEMIA
     Route: 048
     Dates: start: 20091118, end: 20091211
  2. EPADEL S [Concomitant]
     Indication: DYSLIPIDAEMIA
     Route: 048
     Dates: start: 20091118, end: 20091211
  3. BASSAMIN 81MG [Concomitant]
     Indication: EMBOLISM
     Route: 048
     Dates: start: 20091118, end: 20091211

REACTIONS (1)
  - MUSCULAR WEAKNESS [None]
